FAERS Safety Report 18425751 (Version 2)
Quarter: 2020Q4

REPORT INFORMATION
  Report Type: Spontaneous
  Country: PT (occurrence: PT)
  Receive Date: 20201026
  Receipt Date: 20201028
  Transmission Date: 20210114
  Serious: Yes (Other)
  Sender: FDA-Public Use
  Company Number: PT-AMGEN-PRTSP2020170011

PATIENT
  Age: 82 Year
  Sex: Male

DRUGS (4)
  1. OXALIPLATIN. [Concomitant]
     Active Substance: OXALIPLATIN
     Indication: COLON NEOPLASM
     Dosage: UNK
  2. FOLINIC ACID [Concomitant]
     Active Substance: LEUCOVORIN
     Indication: COLON NEOPLASM
     Dosage: UNK
  3. PANITUMUMAB [Suspect]
     Active Substance: PANITUMUMAB
     Indication: COLON NEOPLASM
     Dosage: UNK
     Route: 065
  4. FLUOROURACIL. [Concomitant]
     Active Substance: FLUOROURACIL
     Indication: COLON NEOPLASM
     Dosage: UNK

REACTIONS (8)
  - Blood calcium decreased [Unknown]
  - Vitamin D decreased [Unknown]
  - Supraventricular tachycardia [Unknown]
  - Chvostek^s sign [Unknown]
  - Hypomagnesaemia [Unknown]
  - Seizure [Unknown]
  - Tetany [Unknown]
  - Syncope [Unknown]
